FAERS Safety Report 25659720 (Version 3)
Quarter: 2025Q3

REPORT INFORMATION
  Report Type: Spontaneous
  Country: EU (occurrence: EU)
  Receive Date: 20250808
  Receipt Date: 20250821
  Transmission Date: 20251020
  Serious: Yes (Other)
  Sender: SANDOZ
  Company Number: None

PATIENT
  Age: 47 Year
  Sex: Female
  Weight: 66 kg

DRUGS (5)
  1. CYPROTERONE ACETATE [Suspect]
     Active Substance: CYPROTERONE ACETATE
     Indication: Hirsutism
     Dosage: 20 DF, QMO
     Route: 048
     Dates: start: 19930315, end: 20181020
  2. ESTRADIOL [Suspect]
     Active Substance: ESTRADIOL
     Indication: Product used for unknown indication
     Dosage: 1 DF, QD
     Route: 048
     Dates: start: 2018
  3. ESTRADIOL [Suspect]
     Active Substance: ESTRADIOL
     Indication: Product used for unknown indication
     Dosage: 1 DF, QD
     Route: 003
     Dates: start: 2018
  4. ESTRADIOL\ESTRIOL [Suspect]
     Active Substance: ESTRADIOL\ESTRIOL
     Indication: Product used for unknown indication
     Dosage: 1 DF, QD
     Route: 048
     Dates: end: 20181020
  5. ESTRIOL [Suspect]
     Active Substance: ESTRIOL
     Indication: Product used for unknown indication
     Dosage: 1 DF, QD
     Route: 048
     Dates: start: 20181020

REACTIONS (1)
  - Meningioma [Recovering/Resolving]

NARRATIVE: CASE EVENT DATE: 20190130
